FAERS Safety Report 8601694-7 (Version None)
Quarter: 2012Q3

REPORT INFORMATION
  Report Type: 
  Country: None (occurrence: None)
  Receive Date: 20120817
  Receipt Date: 20120120
  Transmission Date: 20120928
  Serious: No
  Sender: FDA-Public Use
  Company Number: US-BRISTOL-MYERS SQUIBB COMPANY-16360794

PATIENT
  Age: 61 Year
  Sex: Female
  Weight: 127 kg

DRUGS (1)
  1. SPRYCEL [Suspect]
     Indication: CHRONIC MYELOID LEUKAEMIA
     Dates: start: 20111001

REACTIONS (3)
  - HEADACHE [None]
  - MYALGIA [None]
  - CHILLS [None]
